FAERS Safety Report 7060253-0 (Version None)
Quarter: 2010Q4

REPORT INFORMATION
  Report Type: 
  Country: None (occurrence: None)
  Receive Date: 20101025
  Receipt Date: 20101021
  Transmission Date: 20110411
  Serious: Yes (Death)
  Sender: FDA-Public Use
  Company Number: US-B.I. PHARMACEUTICALS,INC./RIDGEFIELD-2010-BP-10004BP

PATIENT
  Age: 64 Year
  Sex: Female
  Weight: 66.7 kg

DRUGS (3)
  1. MOBIC [Suspect]
     Indication: ARTHRITIS
     Dosage: 15 MG
     Route: 048
     Dates: start: 20070907
  2. FEMHRT [Concomitant]
     Route: 048
     Dates: start: 20050601
  3. SYNTHROID [Concomitant]
     Route: 048
     Dates: start: 20051025

REACTIONS (3)
  - HEAD INJURY [None]
  - INJURY [None]
  - LIMB INJURY [None]
